FAERS Safety Report 16521944 (Version 1)
Quarter: 2019Q3

REPORT INFORMATION
  Report Type: Spontaneous
  Country: US (occurrence: US)
  Receive Date: 20190703
  Receipt Date: 20190703
  Transmission Date: 20191004
  Serious: No
  Sender: FDA-Public Use
  Company Number: US-DRREDDYS-USA/USA/19/0111360

PATIENT
  Sex: Female
  Weight: 52.2 kg

DRUGS (4)
  1. PROGESTERONE CAPSULES [Suspect]
     Active Substance: PROGESTERONE
     Indication: POSTMENOPAUSE
     Dosage: BEDTIME
     Route: 048
     Dates: start: 20190515
  2. MAXALT [Concomitant]
     Active Substance: RIZATRIPTAN BENZOATE
     Indication: MIGRAINE
  3. NAPROXEN. [Concomitant]
     Active Substance: NAPROXEN
     Indication: PAIN
  4. THYROID [Concomitant]
     Active Substance: LEVOTHYROXINE\LIOTHYRONINE
     Indication: HYPOTHYROIDISM

REACTIONS (7)
  - Depressed mood [Unknown]
  - Dizziness [Unknown]
  - Decreased appetite [Unknown]
  - Somnolence [Unknown]
  - Constipation [Unknown]
  - Balance disorder [Unknown]
  - Nausea [Unknown]
